FAERS Safety Report 9219802 (Version 1)
Quarter: 2013Q2

REPORT INFORMATION
  Report Type: Report from Study
  Country: AU (occurrence: AU)
  Receive Date: 20130409
  Receipt Date: 20130409
  Transmission Date: 20140414
  Serious: Yes (Other)
  Sender: FDA-Public Use
  Company Number: AU-ROCHE-1210984

PATIENT
  Age: 48 Year
  Sex: Female

DRUGS (4)
  1. AVASTIN [Suspect]
     Indication: PRODUCT USED FOR UNKNOWN INDICATION
     Route: 065
  2. CAELYX [Concomitant]
     Route: 065
  3. PACLITAXEL [Concomitant]
     Route: 065
  4. TAXOL [Concomitant]
     Route: 065

REACTIONS (1)
  - Disease progression [Unknown]
